FAERS Safety Report 17862348 (Version 1)
Quarter: 2020Q2

REPORT INFORMATION
  Report Type: Report from Study
  Country: US (occurrence: US)
  Receive Date: 20200604
  Receipt Date: 20200604
  Transmission Date: 20200714
  Serious: Yes (Other)
  Sender: FDA-Public Use
  Company Number: US-GILEAD-2020-0469644

PATIENT
  Sex: Female

DRUGS (1)
  1. AMBRISENTAN [Suspect]
     Active Substance: AMBRISENTAN
     Indication: PRODUCT USED FOR UNKNOWN INDICATION
     Dosage: 5 MG/UNK
     Route: 065
     Dates: start: 20120410

REACTIONS (5)
  - Immune system disorder [Unknown]
  - Cardiac failure congestive [Unknown]
  - Pain [Unknown]
  - Malaise [Unknown]
  - Abdominal pain [Unknown]
